FAERS Safety Report 8222892-0 (Version None)
Quarter: 2012Q1

REPORT INFORMATION
  Report Type: 
  Country: None (occurrence: None)
  Receive Date: 20120320
  Receipt Date: 20120306
  Transmission Date: 20120608
  Serious: Yes (Other)
  Sender: FDA-Public Use
  Company Number: PL-BAUSCH-2012BL001591

PATIENT
  Age: 5 Month
  Sex: Female
  Weight: 5 kg

DRUGS (2)
  1. THEALOZ [Concomitant]
     Indication: PRODUCT USED FOR UNKNOWN INDICATION
     Route: 047
  2. LOTEMAX [Suspect]
     Indication: IRIS DISORDER
     Route: 047
     Dates: start: 20110901, end: 20120301

REACTIONS (4)
  - VISUAL IMPAIRMENT [None]
  - OFF LABEL USE [None]
  - INCORRECT DRUG ADMINISTRATION DURATION [None]
  - ATROPHY OF GLOBE [None]
